FAERS Safety Report 14429832 (Version 1)
Quarter: 2018Q1

REPORT INFORMATION
  Report Type: Report from Study
  Country: US (occurrence: US)
  Receive Date: 20180123
  Receipt Date: 20180123
  Transmission Date: 20180509
  Serious: No
  Sender: FDA-Public Use
  Company Number: US-AMGEN-USASL2017183406

PATIENT
  Age: 64 Year
  Sex: Male

DRUGS (1)
  1. REPATHA [Suspect]
     Active Substance: EVOLOCUMAB
     Indication: HYPERLIPIDAEMIA
     Dosage: 140 MG, Q2WK
     Route: 065
     Dates: end: 20171020

REACTIONS (6)
  - Memory impairment [Unknown]
  - Myalgia [Unknown]
  - Arthralgia [Unknown]
  - Muscle disorder [Unknown]
  - Abulia [Unknown]
  - Lethargy [Unknown]

NARRATIVE: CASE EVENT DATE: 201711
